FAERS Safety Report 24455336 (Version 2)
Quarter: 2024Q4

REPORT INFORMATION
  Report Type: Report from Study
  Country: US (occurrence: US)
  Receive Date: 20241017
  Receipt Date: 20241018
  Transmission Date: 20250114
  Serious: No
  Sender: ROCHE
  Company Number: US-ROCHE-3484975

PATIENT
  Age: 64 Year
  Sex: Male

DRUGS (6)
  1. RITUXIMAB [Suspect]
     Active Substance: RITUXIMAB
     Indication: Hairy cell leukaemia
     Route: 065
  2. BENDAMUSTINE [Suspect]
     Active Substance: BENDAMUSTINE
     Indication: Hairy cell leukaemia
     Route: 065
  3. PENTOSTATIN [Suspect]
     Active Substance: PENTOSTATIN
     Indication: Hairy cell leukaemia
     Route: 065
  4. IBRUTINIB [Suspect]
     Active Substance: IBRUTINIB
     Indication: Hairy cell leukaemia
     Route: 065
  5. BINIMETINIB [Suspect]
     Active Substance: BINIMETINIB
     Indication: Hairy cell leukaemia
     Route: 065
  6. CLADRIBINE [Suspect]
     Active Substance: CLADRIBINE
     Indication: Hairy cell leukaemia
     Route: 065

REACTIONS (2)
  - COVID-19 [Unknown]
  - Herpes zoster [Unknown]
